FAERS Safety Report 11806452 (Version 1)
Quarter: 2015Q4

REPORT INFORMATION
  Report Type: Spontaneous
  Country: US (occurrence: US)
  Receive Date: 20151207
  Receipt Date: 20151207
  Transmission Date: 20160305
  Serious: No
  Sender: FDA-Public Use
  Company Number: US-BAYER-2015-479328

PATIENT
  Age: 72 Year
  Sex: Female

DRUGS (1)
  1. FINACEA [Suspect]
     Active Substance: AZELAIC ACID
     Indication: ROSACEA
     Dosage: 1 DF, BID
     Route: 061

REACTIONS (3)
  - Drug ineffective [None]
  - Rash [None]
  - Drug dose omission [None]

NARRATIVE: CASE EVENT DATE: 201511
